FAERS Safety Report 6392837-7 (Version None)
Quarter: 2009Q4

REPORT INFORMATION
  Report Type: 
  Country: None (occurrence: None)
  Receive Date: 20091007
  Receipt Date: 20090828
  Transmission Date: 20100525
  Serious: No
  Sender: FDA-Public Use
  Company Number: US-ALLERGAN-0912095US

PATIENT
  Age: 42 Year
  Sex: Female

DRUGS (4)
  1. LATISSE [Suspect]
     Indication: HYPOTRICHOSIS
     Dosage: 1 GTT, QHS
     Route: 061
     Dates: start: 20090826
  2. MAKE-UP [Concomitant]
  3. MASCARA [Concomitant]
  4. EYELINER [Concomitant]

REACTIONS (2)
  - CHILLS [None]
  - MUSCLE TWITCHING [None]
